FAERS Safety Report 4555378-5 (Version None)
Quarter: 2005Q1

REPORT INFORMATION
  Report Type: 
  Country: None (occurrence: None)
  Receive Date: 20050118
  Receipt Date: 20050118
  Transmission Date: 20050727
  Serious: Yes (Hospitalization)
  Sender: FDA-Public Use
  Company Number: None

PATIENT
  Age: 14 Year
  Sex: Male
  Weight: 61.2356 kg

DRUGS (2)
  1. BIAXIN XL [Suspect]
     Indication: PHARYNGITIS STREPTOCOCCAL
     Dosage: 2 QD ORAL
     Route: 048
     Dates: start: 20050110, end: 20050113
  2. CONCERTA [Concomitant]

REACTIONS (2)
  - CONFUSIONAL STATE [None]
  - SOMNOLENCE [None]
